FAERS Safety Report 20575592 (Version 1)
Quarter: 2022Q1

REPORT INFORMATION
  Report Type: Spontaneous
  Country: US (occurrence: US)
  Receive Date: 20220310
  Receipt Date: 20220310
  Transmission Date: 20220424
  Serious: No
  Sender: FDA-Public Use
  Company Number: US-APOTEX-2022AP003966

PATIENT
  Age: 48 Year
  Sex: Female

DRUGS (2)
  1. TRAMADOL [Suspect]
     Active Substance: TRAMADOL
     Indication: Pain in extremity
     Dosage: 50 MILLIGRAM
     Route: 065
  2. TRAMADOL [Suspect]
     Active Substance: TRAMADOL
     Indication: Calciphylaxis

REACTIONS (2)
  - Muscle twitching [Recovered/Resolved]
  - Myoclonus [Recovered/Resolved]
